FAERS Safety Report 13855456 (Version 1)
Quarter: 2017Q3

REPORT INFORMATION
  Report Type: Report from Study
  Country: MX (occurrence: MX)
  Receive Date: 20170810
  Receipt Date: 20170810
  Transmission Date: 20171127
  Serious: Yes (Hospitalization)
  Sender: FDA-Public Use
  Company Number: MX-UCBSA-2017030577

PATIENT
  Age: 2 Year
  Sex: Male
  Weight: 15.4 kg

DRUGS (4)
  1. LEVETIRACETAM. [Suspect]
     Active Substance: LEVETIRACETAM
     Dosage: 2 ML, 2X/DAY (BID)
     Route: 048
     Dates: start: 201703, end: 201707
  2. LEVETIRACETAM. [Suspect]
     Active Substance: LEVETIRACETAM
     Indication: SEIZURE
     Dosage: 1.5 ML, 2X/DAY (BID)
     Route: 048
     Dates: start: 20170220, end: 201702
  3. KEPPRA [Suspect]
     Active Substance: LEVETIRACETAM
     Indication: SEIZURE
     Dosage: UNKNOWN DOSE, ONLY ONE
     Route: 042
     Dates: start: 20170729, end: 20170729
  4. LEVETIRACETAM. [Suspect]
     Active Substance: LEVETIRACETAM
     Dosage: 1.5ML AT MORNING AND 2ML AT NIGHT, 2X/DAY (BID)
     Route: 048
     Dates: start: 201702, end: 201703

REACTIONS (2)
  - Seizure [Recovered/Resolved]
  - Off label use [Unknown]

NARRATIVE: CASE EVENT DATE: 20170220
